FAERS Safety Report 4459037-9 (Version None)
Quarter: 2004Q3

REPORT INFORMATION
  Report Type: 
  Country: None (occurrence: None)
  Receive Date: 20040927
  Receipt Date: 20040915
  Transmission Date: 20050211
  Serious: Yes (Death, Life-Threatening, Hospitalization)
  Sender: FDA-Public Use
  Company Number: GB-JNJFOC-20040904721

PATIENT
  Sex: Male

DRUGS (9)
  1. REMICADE [Suspect]
     Indication: RHEUMATOID ARTHRITIS
     Route: 042
  2. INSULIN [Concomitant]
  3. METFORMIN HCL [Concomitant]
  4. METHOTREXATE [Concomitant]
  5. FOLIC ACID [Concomitant]
  6. B12 [Concomitant]
  7. ASPIRIN [Concomitant]
  8. PREDNISOLONE [Concomitant]
  9. CALCICHEW [Concomitant]

REACTIONS (1)
  - CEREBROVASCULAR ACCIDENT [None]
